FAERS Safety Report 25667679 (Version 1)
Quarter: 2025Q3

REPORT INFORMATION
  Report Type: Spontaneous
  Country: US (occurrence: US)
  Receive Date: 20250811
  Receipt Date: 20250811
  Transmission Date: 20251021
  Serious: Yes (Other)
  Sender: ALEXION PHARMACEUTICALS
  Company Number: US-ASTRAZENECA-202409USA013558US

PATIENT
  Sex: Male
  Weight: 78.458 kg

DRUGS (3)
  1. ROSUVASTATIN [Suspect]
     Active Substance: ROSUVASTATIN
     Dosage: 1 DOSAGE FORM, QD
  2. VYNDAMAX [Suspect]
     Active Substance: TAFAMIDIS
     Dosage: 1 CAPSULE BY MOUTH DAILY
  3. SPIRONOLACTONE [Suspect]
     Active Substance: SPIRONOLACTONE
     Dosage: 1 DOSAGE FORM, QD

REACTIONS (2)
  - Amyloidosis [Unknown]
  - Cardiac failure congestive [Unknown]
